FAERS Safety Report 12808651 (Version 2)
Quarter: 2016Q4

REPORT INFORMATION
  Report Type: Spontaneous
  Country: BA (occurrence: BA)
  Receive Date: 20161004
  Receipt Date: 20161102
  Transmission Date: 20170207
  Serious: Yes (Death, Hospitalization, Other)
  Sender: FDA-Public Use
  Company Number: BA-BAYER-2016-185129

PATIENT
  Age: 62 Year
  Sex: Male
  Weight: 80 kg

DRUGS (10)
  1. FENTANYL. [Concomitant]
     Active Substance: FENTANYL
     Indication: PAIN
     Dosage: DAILY DOSE 50 MCG
  2. MESALAMINE. [Concomitant]
     Active Substance: MESALAMINE
     Indication: COLITIS
     Dosage: DAILY DOSE 15 MG
     Dates: start: 20130103
  3. NEXAVAR [Suspect]
     Active Substance: SORAFENIB
     Indication: HEPATOCELLULAR CARCINOMA
     Dosage: 400 MG, BID
     Dates: start: 200910, end: 201008
  4. TRAMADOL. [Concomitant]
     Active Substance: TRAMADOL
     Indication: PAIN
     Dosage: DAILY DOSE100 MG
     Dates: start: 20130121
  5. NEXAVAR [Suspect]
     Active Substance: SORAFENIB
     Indication: HEPATOCELLULAR CARCINOMA
     Dosage: 400 MG, BID
     Dates: start: 201102, end: 201212
  6. LASIX [Concomitant]
     Active Substance: FUROSEMIDE
     Indication: HYPERTENSION
  7. RANITIDIN [Concomitant]
     Active Substance: RANITIDINE HYDROCHLORIDE
     Indication: GITELMAN^S SYNDROME
     Dosage: DAILY DOSE 300 MG
     Dates: start: 20130212
  8. PRONISON [Concomitant]
     Active Substance: PREDNISONE
     Indication: JAUNDICE
     Dosage: DAILY DOSE 10 MG
     Dates: start: 2013
  9. LASIX [Concomitant]
     Active Substance: FUROSEMIDE
     Indication: ASCITES
     Dosage: DAILY DOSE 80 MG
     Dates: start: 20130212
  10. ALDACTONE A [Concomitant]
     Active Substance: SPIRONOLACTONE
     Indication: ASCITES
     Dosage: DAILY DOSE 50 MG
     Dates: start: 20120212

REACTIONS (28)
  - Thrombocytopenia [Recovered/Resolved]
  - Thrombocytopenia [None]
  - Portal vein thrombosis [Recovered/Resolved]
  - Diverticulum gastric [Recovered/Resolved]
  - Jaundice [None]
  - Gingival bleeding [None]
  - Chest pain [None]
  - Diarrhoea [Recovered/Resolved]
  - Nasal inflammation [None]
  - Splenomegaly [None]
  - Melaena [Recovered/Resolved]
  - Gastric ulcer [Recovered/Resolved]
  - Varices oesophageal [None]
  - Pain of skin [None]
  - Diarrhoea [None]
  - Chronic gastritis [Recovered/Resolved]
  - Fatigue [Fatal]
  - Hepatic failure [Fatal]
  - Palmar-plantar erythrodysaesthesia syndrome [None]
  - Colitis [Recovered/Resolved]
  - Alopecia [None]
  - Asthenia [Fatal]
  - Palmar-plantar erythrodysaesthesia syndrome [Recovered/Resolved]
  - General physical health deterioration [None]
  - Gastrooesophageal reflux disease [Recovered/Resolved]
  - Ascites [None]
  - Hospitalisation [None]
  - Cardiac failure [None]

NARRATIVE: CASE EVENT DATE: 200910
